FAERS Safety Report 10205764 (Version 2)
Quarter: 2015Q1

REPORT INFORMATION
  Report Type: Report from Study
  Country: DE (occurrence: DE)
  Receive Date: 20140530
  Receipt Date: 20150312
  Transmission Date: 20150720
  Serious: Yes (Hospitalization)
  Sender: FDA-Public Use
  Company Number: DE-AMGEN INC.-DEUCT2014038479

PATIENT
  Age: 75 Year
  Sex: Female
  Weight: 55 kg

DRUGS (8)
  1. NADIXA [Concomitant]
     Indication: DERMATITIS
     Dosage: UNK UNK, BID
     Route: 048
     Dates: start: 20140305
  2. MAGNESIUM [Concomitant]
     Active Substance: MAGNESIUM
     Indication: HYPOMAGNESAEMIA
     Dosage: 150 MG, TID
     Route: 048
     Dates: start: 20140515
  3. DERMATOP [Concomitant]
     Active Substance: PREDNICARBATE
     Indication: DERMATITIS
     Dosage: UNK
     Dates: start: 20140430
  4. PANITUMUMAB [Suspect]
     Active Substance: PANITUMUMAB
     Indication: OVARIAN CANCER
     Dosage: 330 MG/KG, UNK
     Route: 042
     Dates: start: 20140204, end: 20140514
  5. DOXYCYCLINE. [Concomitant]
     Active Substance: DOXYCYCLINE
     Indication: DERMATITIS
     Dosage: UNK
     Route: 048
     Dates: start: 20140407
  6. TILIDINE [Concomitant]
     Active Substance: TILIDINE
     Indication: ANALGESIC THERAPY
     Dosage: UNK UNK, BID
     Route: 048
     Dates: start: 20140219
  7. PEGYLATED LIPOSOMAL DOXORUBICIN HYDROCHLORIDE [Concomitant]
     Active Substance: DOXORUBICIN HYDROCHLORIDE
     Indication: OVARIAN CANCER
     Dosage: 30 MG/M2, UNK
     Route: 042
     Dates: start: 20140204, end: 20140430
  8. CARBOPLATIN. [Concomitant]
     Active Substance: CARBOPLATIN
     Indication: OVARIAN CANCER
     Dosage: 418 MUG, UNK
     Route: 042
     Dates: start: 20140204, end: 20140430

REACTIONS (2)
  - Superinfection [Not Recovered/Not Resolved]
  - Dermatitis acneiform [Not Recovered/Not Resolved]

NARRATIVE: CASE EVENT DATE: 20140521
